FAERS Safety Report 19450505 (Version 4)
Quarter: 2022Q1

REPORT INFORMATION
  Report Type: Report from Study
  Country: DE (occurrence: DE)
  Receive Date: 20210622
  Receipt Date: 20220307
  Transmission Date: 20220424
  Serious: Yes (Other)
  Sender: FDA-Public Use
  Company Number: DE-002147023-NVSC2020DE157069

PATIENT
  Sex: Female
  Weight: 61 kg

DRUGS (6)
  1. EXEMESTANE [Suspect]
     Active Substance: EXEMESTANE
     Indication: Breast cancer metastatic
     Dosage: 25 MG, 1X/DAY
     Route: 048
     Dates: start: 20200525, end: 20200526
  2. EXEMESTANE [Suspect]
     Active Substance: EXEMESTANE
     Dosage: 25 MG, QD
     Route: 048
     Dates: start: 20200807, end: 20201021
  3. ZOLEDRONIC ACID [Suspect]
     Active Substance: ZOLEDRONIC ACID
     Dosage: UNK
  4. KISQALI [Suspect]
     Active Substance: RIBOCICLIB
     Indication: Breast cancer metastatic
     Dosage: 600 MG, CYCLIC (QD, SCHEDULE 21 DAYS INTAKE, 7 DAYS PAUSE)
     Route: 048
     Dates: start: 20200225, end: 20200423
  5. KISQALI [Suspect]
     Active Substance: RIBOCICLIB
     Dosage: 600 MG, CYCLIC (QD, SCHEMA 21 DAYS INTAKE, 7 DAYS PAUSE)
     Route: 048
     Dates: start: 20200508, end: 20200526
  6. FULVESTRANT [Suspect]
     Active Substance: FULVESTRANT
     Indication: Breast cancer metastatic
     Dosage: 500 MG, QMO
     Route: 030
     Dates: start: 20200224, end: 20200415

REACTIONS (5)
  - Osteonecrosis of jaw [Not Recovered/Not Resolved]
  - Bone sequestrum [Recovered/Resolved]
  - Gingival swelling [Unknown]
  - Gingival erythema [Unknown]
  - Jaw disorder [Recovered/Resolved]

NARRATIVE: CASE EVENT DATE: 20200908
